FAERS Safety Report 17367723 (Version 1)
Quarter: 2020Q1

REPORT INFORMATION
  Report Type: Spontaneous
  Country: US (occurrence: US)
  Receive Date: 20200203
  Receipt Date: 20200203
  Transmission Date: 20200409
  Serious: Yes (Other)
  Sender: FDA-Public Use
  Company Number: None

PATIENT
  Age: 71 Year
  Sex: Female

DRUGS (7)
  1. FAMOTIDINE. [Concomitant]
     Active Substance: FAMOTIDINE
  2. SERTRALINE [Concomitant]
     Active Substance: SERTRALINE HYDROCHLORIDE
  3. CAPECITABINE. [Suspect]
     Active Substance: CAPECITABINE
     Indication: BREAST CANCER FEMALE
     Route: 048
     Dates: start: 20200114
  4. OMEPRAZOLE. [Concomitant]
     Active Substance: OMEPRAZOLE
  5. FLUCONAZOLE. [Concomitant]
     Active Substance: FLUCONAZOLE
  6. HYDROCODONE-APAP [Concomitant]
     Active Substance: ACETAMINOPHEN\HYDROCODONE
  7. ELIQUIS [Concomitant]
     Active Substance: APIXABAN

REACTIONS (1)
  - Thrombosis [None]

NARRATIVE: CASE EVENT DATE: 20200129
